FAERS Safety Report 15895215 (Version 1)
Quarter: 2019Q1

REPORT INFORMATION
  Report Type: Spontaneous
  Country: US (occurrence: US)
  Receive Date: 20190109
  Receipt Date: 20190109
  Transmission Date: 20190417
  Serious: No
  Sender: FDA-Public Use
  Company Number: None

PATIENT
  Age: 54 Year
  Sex: Male

DRUGS (1)
  1. ENBREL [Suspect]
     Active Substance: ETANERCEPT
     Indication: AORTIC STENOSIS
     Route: 058
     Dates: start: 20181227, end: 20180411

REACTIONS (1)
  - Dizziness [None]

NARRATIVE: CASE EVENT DATE: 20190108
